FAERS Safety Report 5917717-X (Version None)
Quarter: 2008Q4

REPORT INFORMATION
  Report Type: 
  Country: None (occurrence: None)
  Receive Date: 20081014
  Receipt Date: 20081008
  Transmission Date: 20090506
  Serious: Yes (Other)
  Sender: FDA-Public Use
  Company Number: US-ABBOTT-08P-163-0480380-00

PATIENT
  Sex: Male
  Weight: 99.88 kg

DRUGS (2)
  1. HUMIRA [Suspect]
     Indication: CROHN'S DISEASE
     Route: 058
  2. COLAZOL [Concomitant]
     Indication: CROHN'S DISEASE

REACTIONS (4)
  - ACCIDENTAL EXPOSURE [None]
  - INCORRECT DOSE ADMINISTERED [None]
  - SLEEP APNOEA SYNDROME [None]
  - SNORING [None]
